FAERS Safety Report 6395843-1 (Version None)
Quarter: 2009Q4

REPORT INFORMATION
  Report Type: 
  Country: None (occurrence: None)
  Receive Date: 20091009
  Receipt Date: 20090729
  Transmission Date: 20100525
  Serious: No
  Sender: FDA-Public Use
  Company Number: A0796659A

PATIENT
  Age: 69 Year
  Sex: Female

DRUGS (2)
  1. TYKERB [Suspect]
     Dosage: 4TAB PER DAY
     Route: 048
     Dates: start: 20090623
  2. HERCEPTIN [Concomitant]

REACTIONS (2)
  - DIARRHOEA [None]
  - FAECAL INCONTINENCE [None]
